FAERS Safety Report 20101168 (Version 1)
Quarter: 2021Q4

REPORT INFORMATION
  Report Type: Spontaneous
  Country: US (occurrence: US)
  Receive Date: 20211123
  Receipt Date: 20211123
  Transmission Date: 20220303
  Serious: Yes (Life-Threatening, Hospitalization)
  Sender: FDA-Public Use
  Company Number: US-JNJFOC-20211131270

PATIENT
  Age: 24 Year
  Sex: Male
  Weight: 103 kg

DRUGS (1)
  1. TYLENOL EXTRA STRENGTH [Suspect]
     Active Substance: ACETAMINOPHEN
     Indication: Headache
     Dosage: TOTAL DAILY DOSE: 10000 MG FOR 01 DAY
     Route: 048
     Dates: start: 20030628, end: 20030628

REACTIONS (6)
  - Acute hepatic failure [Recovering/Resolving]
  - Acute kidney injury [Unknown]
  - Fungal infection [Recovered/Resolved]
  - Staphylococcal infection [Recovered/Resolved]
  - Pulmonary oedema [Unknown]
  - Accidental overdose [Unknown]

NARRATIVE: CASE EVENT DATE: 20030702
